FAERS Safety Report 7938452-2 (Version None)
Quarter: 2011Q4

REPORT INFORMATION
  Report Type: 
  Country: None (occurrence: None)
  Receive Date: 20111123
  Receipt Date: 20111111
  Transmission Date: 20120403
  Serious: Yes (Hospitalization)
  Sender: FDA-Public Use
  Company Number: ES-AMGEN-ESPCT2011053733

PATIENT
  Age: 50 Year
  Sex: Female

DRUGS (10)
  1. IBUPROFEN [Concomitant]
     Dosage: UNK UNK, PRN
  2. PANITUMUMAB [Suspect]
     Indication: ANAL CANCER
     Dosage: 6 MG/M2, Q2WK
     Route: 042
     Dates: start: 20110829
  3. FLUOROURACIL [Concomitant]
     Dosage: 1000 MG/M2, QMO
     Route: 042
     Dates: start: 20110829
  4. LOPERAMIDE HYDROCHLORIDE [Concomitant]
  5. LODERM [Concomitant]
  6. MITOMICINA C [Concomitant]
     Dosage: 10 MG/M2, QMO
     Route: 042
     Dates: start: 20110829
  7. MARIHUANA [Concomitant]
  8. DECAPEPTYL [Concomitant]
     Indication: ENDOMETRIOSIS
     Dosage: UNK UNK, QMO
  9. PEITEL [Concomitant]
     Dosage: 100 MG, UNK
  10. ATARAX [Concomitant]

REACTIONS (1)
  - FEBRILE NEUTROPENIA [None]
